FAERS Safety Report 19265134 (Version 1)
Quarter: 2021Q2

REPORT INFORMATION
  Report Type: Spontaneous
  Country: CN (occurrence: CN)
  Receive Date: 20210517
  Receipt Date: 20210517
  Transmission Date: 20210717
  Serious: Yes (Life-Threatening)
  Sender: FDA-Public Use
  Company Number: CN-EISAI MEDICAL RESEARCH-EC-2021-092819

PATIENT
  Age: 75 Year
  Sex: Female
  Weight: 43 kg

DRUGS (3)
  1. GEMCITABINE HYDROCHLORIDE. [Concomitant]
     Active Substance: GEMCITABINE HYDROCHLORIDE
     Indication: GALLBLADDER CANCER
     Dosage: 1.2 G, FREQUENCY UNKNOWN
     Route: 041
     Dates: start: 20210309, end: 20210309
  2. LENVIMA [Suspect]
     Active Substance: LENVATINIB
     Indication: HEPATOCELLULAR CARCINOMA
     Route: 048
     Dates: start: 20210302, end: 20210416
  3. OXALIPLATIN. [Concomitant]
     Active Substance: OXALIPLATIN
     Indication: GALLBLADDER CANCER
     Dosage: 150 MG, FREQUENCY UNKNOWN
     Route: 041
     Dates: start: 20210302, end: 20210302

REACTIONS (9)
  - Vomiting [Recovering/Resolving]
  - Abdominal discomfort [Recovering/Resolving]
  - Diarrhoea [Recovering/Resolving]
  - Anaemia [Recovering/Resolving]
  - Nausea [Recovering/Resolving]
  - Haematochezia [Recovering/Resolving]
  - Lower gastrointestinal haemorrhage [Recovering/Resolving]
  - Decreased appetite [Recovering/Resolving]
  - Melaena [Recovering/Resolving]

NARRATIVE: CASE EVENT DATE: 202104
